FAERS Safety Report 24883266 (Version 3)
Quarter: 2025Q2

REPORT INFORMATION
  Report Type: Spontaneous
  Country: ES (occurrence: ES)
  Receive Date: 20250124
  Receipt Date: 20250521
  Transmission Date: 20250717
  Serious: Yes (Hospitalization, Other)
  Sender: RANBAXY
  Company Number: ES-SUN PHARMACEUTICAL INDUSTRIES LTD-2025R1-490419

PATIENT
  Age: 70 Year
  Sex: Male

DRUGS (1)
  1. SUNITINIB [Suspect]
     Active Substance: SUNITINIB
     Indication: Renal cell carcinoma stage IV
     Dosage: 50 MILLIGRAM, QD
     Route: 048

REACTIONS (2)
  - Reproductive toxicity [Unknown]
  - Genital erythema [Recovered/Resolved]
